FAERS Safety Report 17377169 (Version 1)
Quarter: 2020Q1

REPORT INFORMATION
  Report Type: Spontaneous
  Country: US (occurrence: US)
  Receive Date: 20200206
  Receipt Date: 20200206
  Transmission Date: 20200409
  Serious: Yes (Other)
  Sender: FDA-Public Use
  Company Number: US-TEVA-2020-US-1181399

PATIENT
  Age: 53 Year
  Sex: Female

DRUGS (1)
  1. TOLMETIN [Suspect]
     Active Substance: TOLMETIN
     Route: 065

REACTIONS (4)
  - Swelling [Unknown]
  - Pharyngeal swelling [Unknown]
  - Swelling face [Unknown]
  - Anaphylactic reaction [Unknown]

NARRATIVE: CASE EVENT DATE: 20151102
